FAERS Safety Report 4322893-9 (Version None)
Quarter: 2004Q1

REPORT INFORMATION
  Report Type: 
  Country: None (occurrence: None)
  Receive Date: 20040324
  Receipt Date: 20040312
  Transmission Date: 20041129
  Serious: Yes (Hospitalization, Other)
  Sender: FDA-Public Use
  Company Number: WAES 0403DEU00093

PATIENT
  Age: 78 Year
  Sex: Female

DRUGS (16)
  1. ALLOPURINOL [Suspect]
     Indication: HYPERURICAEMIA
     Route: 048
     Dates: end: 20031110
  2. CARBAMAZEPINE [Suspect]
     Indication: SLEEP DISORDER
     Route: 048
     Dates: end: 20031114
  3. DIGITOXIN [Concomitant]
     Indication: ARRHYTHMIA
     Route: 048
  4. DIPYRONE [Suspect]
     Indication: PAIN
     Route: 048
     Dates: end: 20031110
  5. DOXAZOSIN MESYLATE [Concomitant]
     Indication: HYPERTENSION
     Route: 048
     Dates: end: 20031110
  6. FUROSEMIDE SODIUM [Concomitant]
     Indication: HYPERTENSION
     Route: 048
  7. INSULIN HUMAN, ISOPHANE [Concomitant]
     Indication: DIABETES MELLITUS
     Route: 058
  8. INSULIN, NEUTRAL [Concomitant]
     Indication: DIABETES MELLITUS
     Route: 058
  9. ISOSORBIDE MONONITRATE [Concomitant]
     Indication: CORONARY ARTERY DISEASE
     Route: 048
     Dates: end: 20031110
  10. LEVOTHYROXINE SODIUM [Suspect]
     Indication: HYPOTHYROIDISM
     Route: 048
  11. COZAAR [Suspect]
     Indication: HYPERTENSION
     Route: 048
     Dates: end: 20031110
  12. MOLSIDOMINE [Concomitant]
     Indication: CORONARY ARTERY DISEASE
     Route: 048
     Dates: end: 20031110
  13. MOXONIDINE [Concomitant]
     Indication: HYPERTENSION
     Route: 048
     Dates: end: 20031110
  14. PHENPROCOUMON [Suspect]
     Indication: THROMBOSIS PROPHYLAXIS
     Route: 048
     Dates: end: 20031110
  15. THIOCTIC ACID [Concomitant]
     Indication: DIABETIC NEUROPATHY
     Route: 048
     Dates: end: 20031110
  16. TORSEMIDE [Concomitant]
     Indication: HYPERTENSION
     Route: 048

REACTIONS (6)
  - COAGULOPATHY [None]
  - DRUG INTERACTION [None]
  - FALL [None]
  - HAEMATOMA [None]
  - HAEMATURIA [None]
  - HAEMORRHAGE [None]
